FAERS Safety Report 22350030 (Version 3)
Quarter: 2024Q1

REPORT INFORMATION
  Report Type: Spontaneous
  Country: US (occurrence: US)
  Receive Date: 20230522
  Receipt Date: 20240316
  Transmission Date: 20240410
  Serious: No
  Sender: FDA-Public Use
  Company Number: US-SANOFI-01617346

PATIENT
  Age: 33 Year
  Sex: Male

DRUGS (2)
  1. FABRAZYME [Suspect]
     Active Substance: AGALSIDASE BETA
     Indication: Fabry^s disease
     Dosage: UNK
     Route: 042
     Dates: start: 20161227
  2. FABRAZYME [Suspect]
     Active Substance: AGALSIDASE BETA
     Dosage: 55 MG, QOW
     Route: 042
     Dates: start: 20240306

REACTIONS (3)
  - Infusion related reaction [Recovered/Resolved]
  - Inappropriate schedule of product administration [Unknown]
  - Off label use [Unknown]

NARRATIVE: CASE EVENT DATE: 20230401
